FAERS Safety Report 20291958 (Version 1)
Quarter: 2022Q1

REPORT INFORMATION
  Report Type: Spontaneous
  Country: US (occurrence: None)
  Receive Date: 20220104
  Receipt Date: 20220104
  Transmission Date: 20220423
  Serious: No
  Sender: FDA-Public Use
  Company Number: None

PATIENT
  Age: 53 Year
  Sex: Male

DRUGS (1)
  1. TALTZ [Suspect]
     Active Substance: IXEKIZUMAB
     Indication: Psoriasis
     Dosage: OTHER FREQUENCY : WEEK 12 THEN EVERY 4 WEEKS AS DIRECTED.?
     Route: 058
     Dates: start: 202106

REACTIONS (3)
  - Pyrexia [None]
  - Therapy interrupted [None]
  - Malaise [None]
